FAERS Safety Report 24073714 (Version 1)
Quarter: 2024Q3

REPORT INFORMATION
  Report Type: Spontaneous
  Country: US (occurrence: US)
  Receive Date: 20240710
  Receipt Date: 20240710
  Transmission Date: 20241017
  Serious: Yes (Other)
  Sender: JUBILANT
  Company Number: US-JUBILANT CADISTA PHARMACEUTICALS-2024US000931

PATIENT
  Age: 16 Year
  Sex: Male

DRUGS (3)
  1. LEVETIRACETAM [Suspect]
     Active Substance: LEVETIRACETAM
     Indication: Generalised tonic-clonic seizure
     Dosage: UNK, UNK
     Route: 042
  2. LEVETIRACETAM [Suspect]
     Active Substance: LEVETIRACETAM
     Dosage: 750 MG, 2 TIMES PER DAY
     Route: 048
  3. LORAZEPAM [Concomitant]
     Active Substance: LORAZEPAM
     Indication: Generalised tonic-clonic seizure
     Dosage: UNK, UNK

REACTIONS (3)
  - Rhabdomyolysis [Recovered/Resolved]
  - Back pain [Recovered/Resolved]
  - Acute kidney injury [Recovered/Resolved]
